FAERS Safety Report 9923236 (Version 2)
Quarter: 2014Q1

REPORT INFORMATION
  Report Type: Spontaneous
  Country: CA (occurrence: CA)
  Receive Date: 20140225
  Receipt Date: 20140225
  Transmission Date: 20141002
  Serious: Yes (Death)
  Sender: FDA-Public Use
  Company Number: CA-CUBIST PHARMACEUTICAL, INC.-2013CBST001201

PATIENT
  Sex: 0

DRUGS (4)
  1. CUBICIN [Suspect]
     Indication: GRAFT INFECTION
     Dosage: 8.64 MG, TIW (AFTER HEMODIALYSIS)
     Route: 042
     Dates: start: 20131004, end: 20131115
  2. CUBICIN [Suspect]
     Indication: STAPHYLOCOCCAL INFECTION
     Dosage: 800 MG, TIW (AFTER HEMODIALYSIS)
     Route: 042
     Dates: start: 20131004, end: 20131115
  3. CUBICIN [Suspect]
     Indication: OFF LABEL USE
  4. MULTIPLE DRUGS [Concomitant]
     Indication: PRODUCT USED FOR UNKNOWN INDICATION
     Dosage: UNK, UNK UNK
     Route: 065

REACTIONS (4)
  - Sepsis [Fatal]
  - Intestinal ischaemia [Fatal]
  - Staphylococcal infection [Unknown]
  - Antimicrobial susceptibility test resistant [Unknown]
